FAERS Safety Report 8589797-7 (Version None)
Quarter: 2012Q3

REPORT INFORMATION
  Report Type: 
  Country: None (occurrence: None)
  Receive Date: 20120813
  Receipt Date: 19901029
  Transmission Date: 20120928
  Serious: Yes (Other)
  Sender: FDA-Public Use
  Company Number: US-ROCHE-1098752

PATIENT
  Age: 53 Year
  Sex: Male

DRUGS (2)
  1. ACTIVASE [Suspect]
     Dosage: 50 MG OVER 30 MINUTES
     Route: 041
  2. ACTIVASE [Suspect]
     Indication: ACUTE MYOCARDIAL INFARCTION
     Route: 040

REACTIONS (6)
  - RHYTHM IDIOVENTRICULAR [None]
  - HYPOTENSION [None]
  - VOMITING [None]
  - VENTRICULAR EXTRASYSTOLES [None]
  - NAUSEA [None]
  - HYPERHIDROSIS [None]
